FAERS Safety Report 14935241 (Version 1)
Quarter: 2018Q2

REPORT INFORMATION
  Report Type: Spontaneous
  Country: DE (occurrence: DE)
  Receive Date: 20180524
  Receipt Date: 20180524
  Transmission Date: 20180711
  Serious: Yes (Hospitalization, Other)
  Sender: FDA-Public Use
  Company Number: PHHY2018DE006883

PATIENT
  Sex: Male

DRUGS (1)
  1. TRIAMHEXAL [Suspect]
     Active Substance: TRIAMCINOLONE
     Indication: WRIST SURGERY
     Dosage: 40 MG, UNK
     Route: 065

REACTIONS (3)
  - Staphylococcal infection [Unknown]
  - Joint destruction [Unknown]
  - Sepsis [Unknown]
